FAERS Safety Report 21350106 (Version 1)
Quarter: 2022Q3

REPORT INFORMATION
  Report Type: Spontaneous
  Country: US (occurrence: None)
  Receive Date: 20220918
  Receipt Date: 20220918
  Transmission Date: 20221027
  Serious: Yes (Other)
  Sender: FDA-Public Use
  Company Number: None

PATIENT
  Age: 24 Year
  Sex: Male
  Weight: 53.55 kg

DRUGS (2)
  1. MODAFINIL [Suspect]
     Active Substance: MODAFINIL
     Indication: Somnolence
     Dosage: OTHER QUANTITY : 1 TABLET(S);?
     Route: 048
     Dates: start: 20220629, end: 20220912
  2. Multivitamin daily [Concomitant]

REACTIONS (9)
  - Dizziness [None]
  - Dizziness [None]
  - Nausea [None]
  - Fatigue [None]
  - Somnolence [None]
  - Asthenia [None]
  - Musculoskeletal stiffness [None]
  - Tremor [None]
  - Musculoskeletal stiffness [None]

NARRATIVE: CASE EVENT DATE: 20220909
